FAERS Safety Report 5149037-8 (Version None)
Quarter: 2006Q4

REPORT INFORMATION
  Report Type: 
  Country: None (occurrence: None)
  Receive Date: 20061113
  Receipt Date: 20060801
  Transmission Date: 20070319
  Serious: Yes (Death, Other)
  Sender: FDA-Public Use
  Company Number: 2006UW15419

PATIENT
  Age: 65 Year
  Sex: Male
  Weight: 95 kg

DRUGS (16)
  1. TENORMIN [Suspect]
     Indication: TACHYARRHYTHMIA
     Route: 048
  2. NIASPAN [Interacting]
     Indication: HIGH DENSITY LIPOPROTEIN DECREASED
     Route: 048
     Dates: start: 20060611, end: 20060611
  3. NIASPAN [Interacting]
     Indication: BLOOD CHOLESTEROL INCREASED
     Route: 048
     Dates: start: 20060611, end: 20060611
  4. LORAZEPAM [Interacting]
     Indication: DEPRESSION
     Route: 048
  5. TRAZODONE HCL [Interacting]
     Indication: DEPRESSION
     Route: 048
  6. GLUCOTROL XL [Interacting]
     Indication: DIABETES MELLITUS
     Route: 048
  7. LIPITOR [Interacting]
  8. EFFEXOR [Concomitant]
     Indication: DEPRESSION
     Route: 048
  9. LANOXIN [Concomitant]
     Indication: TACHYARRHYTHMIA
     Route: 048
  10. GLUCOPHAGE [Concomitant]
     Indication: DIABETES MELLITUS
     Route: 048
  11. ACTOS [Concomitant]
     Indication: DIABETES MELLITUS
     Route: 048
  12. LANTUS [Concomitant]
     Indication: DIABETES MELLITUS
     Route: 058
  13. TRICOR [Concomitant]
     Indication: DYSLIPIDAEMIA
     Route: 048
  14. WELLBUTRIN [Concomitant]
     Indication: DEPRESSION
     Route: 048
  15. VITAMIN CAP [Concomitant]
  16. RISPERDAL [Concomitant]
     Route: 048

REACTIONS (4)
  - DRUG INTERACTION [None]
  - FLUSHING [None]
  - MEDICATION ERROR [None]
  - MYOCARDIAL INFARCTION [None]
